FAERS Safety Report 25182386 (Version 1)
Quarter: 2025Q2

REPORT INFORMATION
  Report Type: Spontaneous
  Country: US (occurrence: US)
  Receive Date: 20250410
  Receipt Date: 20250410
  Transmission Date: 20250716
  Serious: No
  Sender: KINIKSA PHARMACEUTICALS
  Company Number: US-Kiniksa Pharmaceuticals Ltd.-2024KPU001966

PATIENT
  Age: 66 Year
  Sex: Female

DRUGS (3)
  1. ARCALYST [Suspect]
     Active Substance: RILONACEPT
     Indication: Pericardial disease
     Route: 058
     Dates: start: 20241012
  2. ARCALYST [Suspect]
     Active Substance: RILONACEPT
     Route: 058
     Dates: start: 20241019
  3. ARCALYST [Suspect]
     Active Substance: RILONACEPT
     Route: 058
     Dates: start: 202409

REACTIONS (20)
  - Product preparation issue [Unknown]
  - Tremor [Unknown]
  - Dyspnoea [Unknown]
  - Musculoskeletal disorder [Unknown]
  - Product packaging difficult to open [Unknown]
  - Sleep disorder [Unknown]
  - Injection site paraesthesia [Not Recovered/Not Resolved]
  - Malaise [Not Recovered/Not Resolved]
  - Injury [Unknown]
  - Injection site induration [Not Recovered/Not Resolved]
  - Injection site inflammation [Unknown]
  - Drug hypersensitivity [Unknown]
  - Injection site pain [Not Recovered/Not Resolved]
  - Injection site swelling [Not Recovered/Not Resolved]
  - Injection site warmth [Not Recovered/Not Resolved]
  - Injection site urticaria [Not Recovered/Not Resolved]
  - Injection site erosion [Not Recovered/Not Resolved]
  - Injection site pruritus [Not Recovered/Not Resolved]
  - Hypersensitivity [Unknown]
  - Injection site scar [Unknown]

NARRATIVE: CASE EVENT DATE: 20241001
